FAERS Safety Report 19039576 (Version 1)
Quarter: 2021Q1

REPORT INFORMATION
  Report Type: Report from Study
  Country: None (occurrence: CR)
  Receive Date: 20210322
  Receipt Date: 20210322
  Transmission Date: 20210420
  Serious: Yes (Other)
  Sender: FDA-Public Use
  Company Number: CR-ABBVIE-21K-039-3821193-00

PATIENT
  Sex: Male
  Weight: 43 kg

DRUGS (2)
  1. HUMIRA [Suspect]
     Active Substance: ADALIMUMAB
     Indication: ANKYLOSING SPONDYLITIS
     Route: 058
     Dates: start: 20140604, end: 20210218
  2. METHOTREXATE. [Concomitant]
     Active Substance: METHOTREXATE
     Indication: PRODUCT USED FOR UNKNOWN INDICATION
     Dates: end: 2020

REACTIONS (10)
  - Inflammation [Recovering/Resolving]
  - Fall [Recovering/Resolving]
  - Hip surgery [Recovering/Resolving]
  - Onychomycosis [Recovering/Resolving]
  - COVID-19 [Recovered/Resolved]
  - Tooth injury [Recovering/Resolving]
  - Uveitis [Recovering/Resolving]
  - Immune system disorder [Recovering/Resolving]
  - Osteoarthritis [Recovering/Resolving]
  - Red blood cell sedimentation rate increased [Recovering/Resolving]

NARRATIVE: CASE EVENT DATE: 2017
